FAERS Safety Report 10080242 (Version 1)
Quarter: 2014Q2

REPORT INFORMATION
  Report Type: Spontaneous
  Country: US (occurrence: US)
  Receive Date: 20140415
  Receipt Date: 20140415
  Transmission Date: 20141212
  Serious: No
  Sender: FDA-Public Use
  Company Number: US-BAXTER-2014BAX017741

PATIENT
  Age: 55 Year
  Sex: Female

DRUGS (4)
  1. 0.9% SODIUM CHLORIDE INJECTION [Suspect]
     Indication: DEHYDRATION
     Route: 042
     Dates: start: 20140203, end: 20140203
  2. 0.9% SODIUM CHLORIDE INJECTION [Suspect]
     Route: 042
     Dates: start: 20140309, end: 20140309
  3. 0.9% SODIUM CHLORIDE INJECTION [Suspect]
     Route: 042
     Dates: start: 20140326, end: 20140326
  4. 0.9% SODIUM CHLORIDE INJECTION [Suspect]
     Route: 042
     Dates: start: 20140402, end: 20140402

REACTIONS (3)
  - Sinus disorder [Recovered/Resolved]
  - Choking sensation [Recovered/Resolved]
  - Dry throat [Recovered/Resolved]
